FAERS Safety Report 4741803-3 (Version None)
Quarter: 2005Q3

REPORT INFORMATION
  Report Type: 
  Country: None (occurrence: None)
  Receive Date: 20050808
  Receipt Date: 20050726
  Transmission Date: 20060218
  Serious: Yes (Other)
  Sender: FDA-Public Use
  Company Number: 2005108721

PATIENT
  Age: 62 Year
  Sex: Male
  Weight: 101 kg

DRUGS (3)
  1. CELECOXIB (CELECOXIB) [Suspect]
     Indication: ILL-DEFINED DISORDER
     Dosage: 400 MG(200 MG, 2 IN 1 D)
  2. TRAZODONE HYDROCHLORIDE (TRAZOSONE HYDROCHLORIDE) [Suspect]
     Indication: ILL-DEFINED DISORDER
  3. ESOMEPRAZOLE (ESOMEPRAZOLE) [Suspect]
     Indication: ILL-DEFINED DISORDER

REACTIONS (6)
  - BLOOD ALBUMIN DECREASED [None]
  - GLOMERULONEPHRITIS MINIMAL LESION [None]
  - HAEMATOCRIT DECREASED [None]
  - HYPERTENSION [None]
  - RENAL INTERSTITIAL FIBROSIS [None]
  - RENAL TUBULAR NECROSIS [None]
